FAERS Safety Report 16843850 (Version 1)
Quarter: 2019Q3

REPORT INFORMATION
  Report Type: Spontaneous
  Country: CN (occurrence: CN)
  Receive Date: 20190924
  Receipt Date: 20190924
  Transmission Date: 20191005
  Serious: Yes (Other)
  Sender: FDA-Public Use
  Company Number: CN-009507513-1909CHN007082

PATIENT
  Age: 79 Year
  Sex: Male

DRUGS (2)
  1. CYTOKINE INDUCED KILLER CELLS (AS DRUG) [Concomitant]
     Indication: METASTATIC RENAL CELL CARCINOMA
     Dosage: 5 X 10E9, EVERY 3 WEEKS
  2. PEMBROLIZUMAB. [Suspect]
     Active Substance: PEMBROLIZUMAB
     Indication: METASTATIC RENAL CELL CARCINOMA
     Dosage: 2 MG/MG, EVERY 3 WEEKS

REACTIONS (3)
  - Hypothyroidism [Unknown]
  - Product use in unapproved indication [Unknown]
  - Tumour pseudoprogression [Recovered/Resolved]
